FAERS Safety Report 10421117 (Version 1)
Quarter: 2014Q3

REPORT INFORMATION
  Report Type: Spontaneous
  Country: US (occurrence: None)
  Receive Date: 20140722
  Receipt Date: 20140722
  Transmission Date: 20150326
  Serious: No
  Sender: FDA-Public Use
  Company Number: 163-10004-14060777

PATIENT
  Age: 48 Year
  Sex: Female
  Weight: 105 kg

DRUGS (2)
  1. HUMIRA (ADALIMUMAB) [Concomitant]
  2. OTEZLA [Suspect]
     Active Substance: APREMILAST
     Indication: PSORIATIC ARTHROPATHY
     Route: 048
     Dates: start: 20140513, end: 20140521

REACTIONS (2)
  - Tendonitis [None]
  - Bone pain [None]

NARRATIVE: CASE EVENT DATE: 20140515
